FAERS Safety Report 7125026-9 (Version None)
Quarter: 2010Q4

REPORT INFORMATION
  Report Type: 
  Country: None (occurrence: None)
  Receive Date: 20101123
  Receipt Date: 20101123
  Transmission Date: 20110411
  Serious: Yes (Other)
  Sender: FDA-Public Use
  Company Number: None

PATIENT
  Age: 52 Year
  Sex: Female
  Weight: 67.1324 kg

DRUGS (2)
  1. VENLAFAXINE [Suspect]
     Indication: ANXIETY
     Dosage: 75 MG DAILY PO (SEPT TO MID OCTOBER 2010)
     Route: 048
  2. VENLAFAXINE [Suspect]
     Indication: DEPRESSION
     Dosage: 75 MG DAILY PO (SEPT TO MID OCTOBER 2010)
     Route: 048

REACTIONS (6)
  - ANXIETY [None]
  - DRUG EFFECT DECREASED [None]
  - FOOD CRAVING [None]
  - PRODUCT SUBSTITUTION ISSUE [None]
  - SUICIDAL IDEATION [None]
  - TEMPOROMANDIBULAR JOINT SYNDROME [None]
